FAERS Safety Report 7838000-1 (Version None)
Quarter: 2011Q4

REPORT INFORMATION
  Report Type: 
  Country: None (occurrence: None)
  Receive Date: 20111024
  Receipt Date: 20111021
  Transmission Date: 20120403
  Serious: No
  Sender: FDA-Public Use
  Company Number: US-ABBOTT-11P-163-0867219-00

PATIENT
  Sex: Female
  Weight: 44.038 kg

DRUGS (3)
  1. LUPRON DEPOT [Suspect]
     Indication: UTERINE LEIOMYOMA
     Dates: start: 20110801
  2. TOPAMAX [Concomitant]
     Indication: MIGRAINE
  3. ZOLOFT [Concomitant]
     Indication: PRODUCT USED FOR UNKNOWN INDICATION

REACTIONS (2)
  - MENSTRUATION IRREGULAR [None]
  - MENORRHAGIA [None]
